FAERS Safety Report 4815415-7 (Version None)
Quarter: 2005Q4

REPORT INFORMATION
  Report Type: 
  Country: None (occurrence: None)
  Receive Date: 20051027
  Receipt Date: 20051020
  Transmission Date: 20060501
  Serious: No
  Sender: FDA-Public Use
  Company Number: TPA2005A01266

PATIENT
  Age: 57 Year
  Sex: Female
  Weight: 90.7194 kg

DRUGS (6)
  1. ACTOS [Suspect]
     Indication: DIABETES MELLITUS NON-INSULIN-DEPENDENT
     Dosage: 1 IN 1 D, PER ORAL
     Route: 048
     Dates: start: 20040101, end: 20050501
  2. GLUCOTROL XL [Suspect]
     Indication: DIABETES MELLITUS
  3. LIPITOR [Suspect]
     Indication: BLOOD CHOLESTEROL INCREASED
     Dosage: 20 MG, 1 IN 1 D, PER ORAL
     Route: 048
  4. NORVASC [Suspect]
     Indication: HYPERTENSION
     Dosage: 10 MG, 1 IN 1 D, PER ORAL
     Route: 048
  5. POTASSIUM (POTASSIUM) [Concomitant]
  6. LISINOPRIL [Concomitant]

REACTIONS (5)
  - DIFFICULTY IN WALKING [None]
  - DYSPNOEA [None]
  - HIP SWELLING [None]
  - OEDEMA PERIPHERAL [None]
  - WEIGHT INCREASED [None]
